FAERS Safety Report 9691763 (Version 2)
Quarter: 2014Q1

REPORT INFORMATION
  Report Type: Spontaneous
  Country: GB (occurrence: GB)
  Receive Date: 20131115
  Receipt Date: 20140129
  Transmission Date: 20141002
  Serious: Yes (Hospitalization)
  Sender: FDA-Public Use
  Company Number: GB-B.I. PHARMACEUTICALS,INC./RIDGEFIELD-2013-BI-36867UK

PATIENT
  Age: 78 Year
  Sex: Male
  Weight: 74.5 kg

DRUGS (9)
  1. PRADAXA [Suspect]
     Indication: PROPHYLAXIS
     Route: 048
     Dates: start: 20131022, end: 20131029
  2. ASPIRIN [Concomitant]
  3. ATENOLOL [Concomitant]
  4. BENDROFLUMETHIAZIDE [Concomitant]
  5. CODEINE [Concomitant]
  6. GABAPENTIN [Concomitant]
  7. PARACETAMOL [Concomitant]
  8. PRAVASTATIN [Concomitant]
  9. RAMIPRIL [Concomitant]

REACTIONS (5)
  - Pulmonary embolism [Not Recovered/Not Resolved]
  - Pneumonia [Not Recovered/Not Resolved]
  - Crepitations [Unknown]
  - Oxygen saturation decreased [Unknown]
  - Cough [Unknown]
